FAERS Safety Report 11813413 (Version 1)
Quarter: 2015Q4

REPORT INFORMATION
  Report Type: Spontaneous
  Country: DE (occurrence: DE)
  Receive Date: 20151209
  Receipt Date: 20151209
  Transmission Date: 20160305
  Serious: Yes (Hospitalization)
  Sender: FDA-Public Use
  Company Number: DE-ACTAVIS-2015-26303

PATIENT
  Age: 49 Year
  Sex: Female

DRUGS (13)
  1. PANTOPRAZOLE SODIUM. [Suspect]
     Active Substance: PANTOPRAZOLE SODIUM
     Indication: PRODUCT USED FOR UNKNOWN INDICATION
     Dosage: 60 MG, UNKNOWN
     Route: 048
     Dates: start: 20120628, end: 20120701
  2. ORFIRIL [Suspect]
     Active Substance: VALPROIC ACID
     Dosage: 1500 MG, DAILY
     Route: 048
     Dates: start: 20120618
  3. TAVOR [Concomitant]
     Active Substance: LORAZEPAM
     Indication: PRODUCT USED FOR UNKNOWN INDICATION
     Dosage: 4 MG, DAILY
     Route: 048
     Dates: start: 20120627
  4. VOLTAREN [Suspect]
     Active Substance: DICLOFENAC SODIUM
     Indication: PRODUCT USED FOR UNKNOWN INDICATION
     Dosage: 150 MG, DAILY
     Route: 048
     Dates: start: 20120625, end: 20120629
  5. ORFIRIL [Suspect]
     Active Substance: VALPROIC ACID
     Indication: PRODUCT USED FOR UNKNOWN INDICATION
     Dosage: 2000 MG, DAILY
     Route: 048
     Dates: start: 20120621, end: 20120701
  6. ZYPREXA [Suspect]
     Active Substance: OLANZAPINE
     Indication: PRODUCT USED FOR UNKNOWN INDICATION
     Dosage: 10 MG, DAILY
     Route: 048
     Dates: start: 20120624, end: 20120629
  7. ORFIRIL [Suspect]
     Active Substance: VALPROIC ACID
     Dosage: 1200 MG, DAILY
     Dates: start: 20120615, end: 20120617
  8. VOLTAREN [Suspect]
     Active Substance: DICLOFENAC SODIUM
     Dosage: 75 MG, DAILY
     Route: 048
     Dates: start: 20120630
  9. TAVOR [Concomitant]
     Active Substance: LORAZEPAM
     Dosage: 5 MG, DAILY
     Route: 065
     Dates: start: 20120628, end: 20120701
  10. CIPRAMIL                           /00582602/ [Suspect]
     Active Substance: CITALOPRAM HYDROBROMIDE
     Indication: PRODUCT USED FOR UNKNOWN INDICATION
     Dosage: 10 MG, DAILY
     Route: 048
     Dates: start: 20120628, end: 20150701
  11. ZYPREXA [Suspect]
     Active Substance: OLANZAPINE
     Dosage: 7.5 MG, DAILY
     Route: 048
     Dates: start: 20120623
  12. ORFIRIL [Suspect]
     Active Substance: VALPROIC ACID
     Dosage: 1800 MG, DAILY
     Route: 048
     Dates: start: 20120619, end: 20150620
  13. ORFIRIL [Suspect]
     Active Substance: VALPROIC ACID
     Dosage: 600 MG, DAILY
     Dates: start: 20120614

REACTIONS (1)
  - Colitis [Recovering/Resolving]

NARRATIVE: CASE EVENT DATE: 20120630
